FAERS Safety Report 14000184 (Version 1)
Quarter: 2017Q3

REPORT INFORMATION
  Report Type: Report from Study
  Country: US (occurrence: US)
  Receive Date: 20170922
  Receipt Date: 20170922
  Transmission Date: 20171128
  Serious: Yes (Other)
  Sender: FDA-Public Use
  Company Number: PHHO2012US019794

PATIENT
  Age: 61 Year
  Sex: Female
  Weight: 80 kg

DRUGS (3)
  1. GSK1120212 [Suspect]
     Active Substance: TRAMETINIB
     Indication: METASTATIC MALIGNANT MELANOMA
     Dosage: 1 MG, QD
     Route: 048
     Dates: start: 20100802
  2. GSK1120212 [Suspect]
     Active Substance: TRAMETINIB
     Dosage: 1.5 MG, UNK
     Route: 048
     Dates: start: 20110215
  3. GSK2118436 [Suspect]
     Active Substance: DABRAFENIB
     Indication: METASTATIC MALIGNANT MELANOMA
     Dosage: 150 MG, BID
     Route: 048
     Dates: start: 20100802

REACTIONS (4)
  - Squamous cell carcinoma [Recovered/Resolved]
  - Squamous cell carcinoma of skin [Recovered/Resolved]
  - Squamous cell carcinoma of skin [Recovered/Resolved]
  - Squamous cell carcinoma of skin [Recovered/Resolved]

NARRATIVE: CASE EVENT DATE: 20110823
